FAERS Safety Report 18363911 (Version 4)
Quarter: 2020Q4

REPORT INFORMATION
  Report Type: Spontaneous
  Country: JP (occurrence: JP)
  Receive Date: 20201009
  Receipt Date: 20201207
  Transmission Date: 20210114
  Serious: Yes (Death, Other)
  Sender: FDA-Public Use
  Company Number: JP-JNJFOC-20201004978

PATIENT
  Age: 63 Year
  Sex: Male
  Weight: 73 kg

DRUGS (11)
  1. XEPLION [Suspect]
     Active Substance: PALIPERIDONE PALMITATE
     Indication: SCHIZOPHRENIA
     Route: 030
     Dates: start: 20200523, end: 20200919
  2. REBAMIPIDE [Concomitant]
     Active Substance: REBAMIPIDE
     Indication: ABDOMINAL DISCOMFORT
     Route: 048
     Dates: end: 20200928
  3. XEPLION [Suspect]
     Active Substance: PALIPERIDONE PALMITATE
  4. MAGMITT [Concomitant]
     Active Substance: MAGNESIUM OXIDE
     Indication: CONSTIPATION
     Route: 048
     Dates: end: 20200927
  5. LANSOPRAZOLE. [Concomitant]
     Active Substance: LANSOPRAZOLE
     Indication: GASTROOESOPHAGEAL REFLUX DISEASE
     Route: 048
     Dates: end: 20200928
  6. XEPLION [Suspect]
     Active Substance: PALIPERIDONE PALMITATE
  7. LATUDA [Suspect]
     Active Substance: LURASIDONE HYDROCHLORIDE
     Indication: PSYCHIATRIC SYMPTOM
     Route: 048
     Dates: start: 20200613, end: 20200928
  8. NU-LOTAN [Concomitant]
     Active Substance: LOSARTAN POTASSIUM
     Indication: HYPERTENSION
     Route: 048
     Dates: end: 20200928
  9. LIMAS [Suspect]
     Active Substance: LITHIUM CARBONATE
     Indication: MENTAL DISORDER
     Route: 048
     Dates: end: 20200928
  10. BENZALIN                           /00036201/ [Concomitant]
     Active Substance: NITRAZEPAM
     Indication: INSOMNIA
     Route: 048
     Dates: end: 20200927
  11. DAYVIGO [Concomitant]
     Active Substance: LEMBOREXANT
     Indication: INSOMNIA
     Route: 048
     Dates: start: 20200722, end: 20200927

REACTIONS (4)
  - Cardio-respiratory arrest [Fatal]
  - Cellulitis [Not Recovered/Not Resolved]
  - Physical deconditioning [Unknown]
  - Circulatory collapse [Fatal]

NARRATIVE: CASE EVENT DATE: 2020
